FAERS Safety Report 17467398 (Version 1)
Quarter: 2020Q1

REPORT INFORMATION
  Report Type: Spontaneous
  Country: PT (occurrence: PT)
  Receive Date: 20200227
  Receipt Date: 20200227
  Transmission Date: 20200409
  Serious: Yes (Congenital Anomaly, Other)
  Sender: FDA-Public Use
  Company Number: PT-MYLANLABS-2020M1020770

PATIENT
  Age: 7 Week
  Sex: Male

DRUGS (11)
  1. RITONAVIR. [Suspect]
     Active Substance: RITONAVIR
     Indication: HIV INFECTION
     Dosage: UNK
     Route: 064
  2. DARUNAVIR [Suspect]
     Active Substance: DARUNAVIR
     Indication: HIV INFECTION
     Dosage: UNK
     Route: 064
  3. HARVONI [Suspect]
     Active Substance: LEDIPASVIR\SOFOSBUVIR
     Indication: CHRONIC HEPATITIS C
     Dosage: UNK
     Route: 064
     Dates: start: 201808, end: 201810
  4. FOLICIL [Concomitant]
     Active Substance: FOLIC ACID
     Dosage: UNK
  5. YODAFAR [Concomitant]
     Dosage: UNK
  6. METHADONE [Concomitant]
     Active Substance: METHADONE HYDROCHLORIDE
     Dosage: UNK
  7. EMTRICITABINE/TENOFOVIR DISOPROXIL FUMARATE [Suspect]
     Active Substance: EMTRICITABINE\TENOFOVIR DISOPROXIL FUMARATE
     Indication: HIV INFECTION
     Dosage: UNK
     Route: 064
  8. EMTRICITABINE/TENOFOVIR DISOPROXIL FUMARATE [Suspect]
     Active Substance: EMTRICITABINE\TENOFOVIR DISOPROXIL FUMARATE
     Indication: HEPATITIS C
  9. DARUNAVIR [Suspect]
     Active Substance: DARUNAVIR
     Indication: HEPATITIS C
  10. DARUNAVIR W/RITONAVIR [Concomitant]
     Active Substance: DARUNAVIR\RITONAVIR
     Dosage: UNK
  11. RITONAVIR. [Suspect]
     Active Substance: RITONAVIR
     Indication: HEPATITIS C

REACTIONS (3)
  - Ectopic kidney [Unknown]
  - Laryngomalacia [Unknown]
  - Foetal exposure during pregnancy [Recovered/Resolved]
